FAERS Safety Report 13893321 (Version 1)
Quarter: 2017Q3

REPORT INFORMATION
  Report Type: Spontaneous
  Country: US (occurrence: US)
  Receive Date: 20170822
  Receipt Date: 20170822
  Transmission Date: 20171127
  Serious: No
  Sender: FDA-Public Use
  Company Number: US-ROCHE-1270614

PATIENT
  Sex: Female

DRUGS (5)
  1. FEMARA [Concomitant]
     Active Substance: LETROZOLE
  2. AFINITOR [Concomitant]
     Active Substance: EVEROLIMUS
  3. TYKERB [Concomitant]
     Active Substance: LAPATINIB DITOSYLATE
  4. ZOMETA [Concomitant]
     Active Substance: ZOLEDRONIC ACID
  5. HERCEPTIN [Suspect]
     Active Substance: TRASTUZUMAB
     Indication: PRODUCT USED FOR UNKNOWN INDICATION
     Route: 065

REACTIONS (4)
  - Drug effect decreased [Unknown]
  - Metastases to bone [Unknown]
  - Metastasis [Unknown]
  - Metastases to liver [Unknown]
